FAERS Safety Report 12915144 (Version 1)
Quarter: 2016Q4

REPORT INFORMATION
  Report Type: Spontaneous
  Country: US (occurrence: US)
  Receive Date: 20161106
  Receipt Date: 20161106
  Transmission Date: 20170207
  Serious: No
  Sender: FDA-Public Use
  Company Number: US-RELYPSA-RLY2016002535

PATIENT
  Sex: Male

DRUGS (15)
  1. CALCITRIOL. [Concomitant]
     Active Substance: CALCITRIOL
  2. CABERGOLINE. [Concomitant]
     Active Substance: CABERGOLINE
  3. MIDODRINE HCL [Concomitant]
     Active Substance: MIDODRINE HYDROCHLORIDE
  4. ULORIC [Concomitant]
     Active Substance: FEBUXOSTAT
  5. ASPIRIN                            /00002701/ [Concomitant]
     Active Substance: ASPIRIN
  6. DEXAMETHASONE SODIUM PHOSPHATE. [Concomitant]
     Active Substance: DEXAMETHASONE SODIUM PHOSPHATE
  7. SYNTHROID [Concomitant]
     Active Substance: LEVOTHYROXINE SODIUM
  8. ACETAMINOPHEN. [Concomitant]
     Active Substance: ACETAMINOPHEN
  9. ANDROGEL [Concomitant]
     Active Substance: TESTOSTERONE
  10. ALLEGRA ALLERGY [Concomitant]
     Active Substance: FEXOFENADINE HYDROCHLORIDE
  11. ACYCLOVIR                          /00587301/ [Concomitant]
     Active Substance: ACYCLOVIR
  12. LORAZEPAM. [Concomitant]
     Active Substance: LORAZEPAM
  13. VELTASSA [Suspect]
     Active Substance: PATIROMER
     Indication: HYPERKALAEMIA
     Dosage: 8.4 G, QD
     Route: 048
  14. VELTASSA [Suspect]
     Active Substance: PATIROMER
     Dosage: 8.4 G, 2-3 TIMES A WEEK
     Route: 048
  15. ATOVAQUONE. [Concomitant]
     Active Substance: ATOVAQUONE

REACTIONS (2)
  - Blood potassium increased [Unknown]
  - Off label use [Unknown]
